FAERS Safety Report 4317974-X (Version None)
Quarter: 2004Q1

REPORT INFORMATION
  Report Type: 
  Country: None (occurrence: None)
  Receive Date: 20040316
  Receipt Date: 20040311
  Transmission Date: 20041129
  Serious: Yes (Hospitalization)
  Sender: FDA-Public Use
  Company Number: FR-GLAXOSMITHKLINE-B0326391A

PATIENT
  Age: 73 Year
  Sex: Male
  Weight: 75 kg

DRUGS (7)
  1. AUGMENTIN [Suspect]
     Indication: PHARYNGITIS
     Dosage: 2G SINGLE DOSE
     Route: 048
     Dates: start: 20040127, end: 20040127
  2. LOXEN LP [Concomitant]
     Indication: ESSENTIAL HYPERTENSION
     Dosage: 50MG TWICE PER DAY
     Route: 048
     Dates: start: 20040120
  3. NITROGLYCERIN [Concomitant]
     Dosage: 5MG PER DAY
     Route: 061
  4. RENITEC [Concomitant]
     Dosage: 5MG PER DAY
     Route: 048
     Dates: start: 20040120
  5. PHOSPHALUGEL [Concomitant]
     Dosage: 1UNIT THREE TIMES PER DAY
     Route: 048
     Dates: start: 20040118
  6. MOTILIUM [Concomitant]
     Dosage: 10MG THREE TIMES PER DAY
     Route: 048
  7. TRANXENE [Concomitant]
     Dosage: .5UNIT PER DAY
     Route: 048

REACTIONS (12)
  - ABNORMAL BEHAVIOUR [None]
  - CHEILITIS [None]
  - CONJUNCTIVITIS [None]
  - HAEMATURIA [None]
  - INFLAMMATION [None]
  - OEDEMA [None]
  - PROTEINURIA [None]
  - PRURITUS [None]
  - RASH ERYTHEMATOUS [None]
  - RENAL FAILURE CHRONIC [None]
  - SKIN DESQUAMATION [None]
  - VISUAL ACUITY REDUCED [None]
